FAERS Safety Report 13183113 (Version 2)
Quarter: 2017Q1

REPORT INFORMATION
  Report Type: Spontaneous
  Country: JP (occurrence: JP)
  Receive Date: 20170203
  Receipt Date: 20170217
  Transmission Date: 20170428
  Serious: Yes (Hospitalization, Other)
  Sender: FDA-Public Use
  Company Number: JP-PFIZER INC-2017043521

PATIENT
  Age: 66 Year
  Sex: Male

DRUGS (20)
  1. TRAZENTA [Concomitant]
     Active Substance: LINAGLIPTIN
     Dosage: UNK
  2. MEIACT [Concomitant]
     Active Substance: CEFDITOREN PIVOXIL
     Dosage: UNK
  3. HUMALOG [Concomitant]
     Active Substance: INSULIN LISPRO
     Dosage: UNK
     Dates: start: 20150618
  4. METLIGINE [Concomitant]
     Active Substance: MIDODRINE HYDROCHLORIDE
     Dosage: UNK
  5. NU-LOTAN [Concomitant]
     Active Substance: LOSARTAN POTASSIUM
     Dosage: UNK
  6. AVAPRO [Concomitant]
     Active Substance: IRBESARTAN
     Dosage: UNK
  7. TRESIBA [Concomitant]
     Active Substance: INSULIN DEGLUDEC
     Dosage: UNK
  8. BUP-4 [Concomitant]
     Active Substance: PROPIVERINE
     Dosage: UNK
  9. HARNAL [Concomitant]
     Active Substance: TAMSULOSIN HYDROCHLORIDE
     Dosage: UNK
  10. MAGLAX [Concomitant]
     Active Substance: MAGNESIUM OXIDE
     Dosage: UNK
  11. NASONEX [Concomitant]
     Active Substance: MOMETASONE FUROATE
     Dosage: UNK
  12. MIGLITOL. [Suspect]
     Active Substance: MIGLITOL
     Dosage: 150 MG, 1X/DAY
     Route: 048
  13. AMITIZA [Concomitant]
     Active Substance: LUBIPROSTONE
     Dosage: UNK
  14. VICTOZA [Concomitant]
     Active Substance: LIRAGLUTIDE
     Dosage: UNK
  15. MIGLITOL. [Suspect]
     Active Substance: MIGLITOL
     Dosage: 100 MG, 1X/DAY
     Route: 048
     Dates: start: 20150618
  16. AMLODIN [Concomitant]
     Active Substance: AMLODIPINE BESYLATE
     Dosage: UNK
  17. CONIEL [Concomitant]
     Active Substance: BENIDIPINE HYDROCHLORIDE
     Dosage: UNK
  18. URITOS [Concomitant]
     Active Substance: IMIDAFENACIN
     Dosage: UNK
  19. IMIDAFENACIN [Concomitant]
     Active Substance: IMIDAFENACIN
     Dosage: UNK
  20. CRESTOR [Concomitant]
     Active Substance: ROSUVASTATIN CALCIUM
     Dosage: UNK

REACTIONS (3)
  - Pharyngitis [Recovered/Resolved]
  - Herpes zoster [Recovered/Resolved]
  - Pyelonephritis [Recovered/Resolved]

NARRATIVE: CASE EVENT DATE: 20150727
